FAERS Safety Report 18423841 (Version 2)
Quarter: 2020Q4

REPORT INFORMATION
  Report Type: Spontaneous
  Country: FR (occurrence: FR)
  Receive Date: 20201024
  Receipt Date: 20201207
  Transmission Date: 20210114
  Serious: Yes (Congenital Anomaly)
  Sender: FDA-Public Use
  Company Number: FR-009507513-2010FRA007271

PATIENT
  Sex: Male
  Weight: 2.7 kg

DRUGS (4)
  1. LOXEN [Concomitant]
     Dosage: UNK
  2. VIRAMUNE [Suspect]
     Active Substance: NEVIRAPINE
     Indication: HIV INFECTION
     Dosage: UNK
     Route: 064
     Dates: start: 20151110, end: 20160721
  3. VIREAD [Suspect]
     Active Substance: TENOFOVIR DISOPROXIL FUMARATE
     Indication: HIV INFECTION
     Route: 064
     Dates: start: 20151110, end: 20160721
  4. ISENTRESS [Suspect]
     Active Substance: RALTEGRAVIR POTASSIUM
     Indication: HIV INFECTION
     Dosage: UNK
     Route: 064
     Dates: start: 20151110, end: 20160721

REACTIONS (4)
  - Congenital skin dimples [Not Recovered/Not Resolved]
  - Laryngomalacia [Not Recovered/Not Resolved]
  - Umbilical hernia [Not Recovered/Not Resolved]
  - Brachydactyly [Not Recovered/Not Resolved]

NARRATIVE: CASE EVENT DATE: 20160721
